FAERS Safety Report 5308993-5 (Version None)
Quarter: 2007Q2

REPORT INFORMATION
  Report Type: 
  Country: None (occurrence: None)
  Receive Date: 20070426
  Receipt Date: 20070414
  Transmission Date: 20071010
  Serious: Yes (Other)
  Sender: FDA-Public Use
  Company Number: US-PFIZER INC-2007030683

PATIENT
  Sex: Male
  Weight: 71.2 kg

DRUGS (2)
  1. NEURONTIN [Suspect]
     Indication: DIABETIC NEUROPATHY
  2. GLIPIZIDE [Concomitant]

REACTIONS (3)
  - CHOKING [None]
  - DYSPHAGIA [None]
  - EATING DISORDER [None]
